FAERS Safety Report 12784930 (Version 1)
Quarter: 2016Q3

REPORT INFORMATION
  Report Type: Spontaneous
  Country: US (occurrence: US)
  Receive Date: 20160927
  Receipt Date: 20160927
  Transmission Date: 20161109
  Serious: No
  Sender: FDA-Public Use
  Company Number: US-IGSA-GTI003173

PATIENT
  Age: 74 Year
  Sex: Female
  Weight: 67 kg

DRUGS (17)
  1. TRIMETHOPRIM. [Concomitant]
     Active Substance: TRIMETHOPRIM
  2. LEVOTHYROXINE. [Concomitant]
     Active Substance: LEVOTHYROXINE
  3. PLAVIX [Concomitant]
     Active Substance: CLOPIDOGREL BISULFATE
  4. PROLASTIN-C [Suspect]
     Active Substance: .ALPHA.1-PROTEINASE INHIBITOR HUMAN
     Indication: ALPHA-1 ANTI-TRYPSIN DEFICIENCY
     Route: 042
     Dates: start: 20150422
  5. NITROSTAT [Concomitant]
     Active Substance: NITROGLYCERIN
  6. CLONAZEPAM. [Concomitant]
     Active Substance: CLONAZEPAM
  7. LAMOTRIGINE. [Concomitant]
     Active Substance: LAMOTRIGINE
  8. PROLASTIN-C [Suspect]
     Active Substance: .ALPHA.1-PROTEINASE INHIBITOR HUMAN
     Indication: ALPHA-1 ANTI-TRYPSIN DEFICIENCY
     Route: 042
     Dates: start: 20150427
  9. ALBUTEROL SULFATE. [Concomitant]
     Active Substance: ALBUTEROL SULFATE
  10. BENADRYL [Concomitant]
     Active Substance: DIPHENHYDRAMINE HYDROCHLORIDE
     Indication: PREMEDICATION
     Dates: start: 20150427
  11. LISINOPRIL. [Concomitant]
     Active Substance: LISINOPRIL
  12. PROLASTIN-C [Suspect]
     Active Substance: .ALPHA.1-PROTEINASE INHIBITOR HUMAN
     Indication: ALPHA-1 ANTI-TRYPSIN DEFICIENCY
     Route: 042
     Dates: start: 20150420
  13. AMLODIPINE [Concomitant]
     Active Substance: AMLODIPINE BESYLATE
  14. SIMVASTATIN. [Concomitant]
     Active Substance: SIMVASTATIN
  15. MUCINEX [Concomitant]
     Active Substance: GUAIFENESIN
  16. ZYRTEC [Concomitant]
     Active Substance: CETIRIZINE HYDROCHLORIDE
  17. PANTOPRAZOLE [Concomitant]
     Active Substance: PANTOPRAZOLE SODIUM

REACTIONS (10)
  - Hypoaesthesia oral [Recovered/Resolved]
  - Pruritus [Recovering/Resolving]
  - Asthenia [Recovering/Resolving]
  - Rash [Recovering/Resolving]
  - Blood pressure increased [Recovered/Resolved]
  - Confusional state [Recovering/Resolving]
  - Depression [Recovering/Resolving]
  - Disorganised speech [Recovering/Resolving]
  - Dry throat [Recovered/Resolved]
  - Dysphagia [Recovered/Resolved]

NARRATIVE: CASE EVENT DATE: 20150423
